FAERS Safety Report 9606795 (Version 2)
Quarter: 2013Q4

REPORT INFORMATION
  Report Type: Spontaneous
  Country: US (occurrence: US)
  Receive Date: 20131008
  Receipt Date: 20131008
  Transmission Date: 20140711
  Serious: No
  Sender: FDA-Public Use
  Company Number: US-AMGEN-USASP2013055837

PATIENT
  Age: 70 Year
  Sex: Female
  Weight: 55.78 kg

DRUGS (1)
  1. PROLIA [Suspect]
     Indication: OSTEOPOROSIS POSTMENOPAUSAL
     Dosage: 60 MG, Q6MO
     Route: 065
     Dates: start: 20130222, end: 20130822

REACTIONS (3)
  - Myalgia [Recovered/Resolved]
  - Back pain [Recovered/Resolved]
  - Arthralgia [Recovered/Resolved]
